FAERS Safety Report 4736871-9 (Version None)
Quarter: 2005Q3

REPORT INFORMATION
  Report Type: 
  Country: None (occurrence: None)
  Receive Date: 20050808
  Receipt Date: 20050802
  Transmission Date: 20060218
  Serious: Yes (Death)
  Sender: FDA-Public Use
  Company Number: US-GLAXOSMITHKLINE-A0569168A

PATIENT
  Age: 54 Year
  Sex: Female

DRUGS (1)
  1. PAXIL CR [Suspect]
     Indication: STRESS
     Dosage: 25MG UNKNOWN
     Route: 048
     Dates: start: 20030801

REACTIONS (1)
  - COMPLETED SUICIDE [None]
